FAERS Safety Report 9625130 (Version 1)
Quarter: 2013Q4

REPORT INFORMATION
  Report Type: Report from Study
  Country: CA (occurrence: CA)
  Receive Date: 20131016
  Receipt Date: 20131016
  Transmission Date: 20140711
  Serious: Yes (Other)
  Sender: FDA-Public Use
  Company Number: CA-JNJFOC-20131006944

PATIENT
  Sex: Female
  Weight: 75.3 kg

DRUGS (5)
  1. REMICADE [Suspect]
     Indication: CROHN^S DISEASE
     Route: 042
     Dates: start: 20121128
  2. NAPROXEN [Suspect]
     Indication: JOINT INJURY
     Route: 065
     Dates: start: 2013, end: 2013
  3. BENADRYL [Concomitant]
     Indication: PREMEDICATION
     Route: 065
  4. TYLENOL [Concomitant]
     Indication: PREMEDICATION
     Route: 065
  5. SOLU-MEDROL [Concomitant]
     Indication: PREMEDICATION
     Route: 065

REACTIONS (4)
  - Joint injury [Unknown]
  - Diarrhoea [Unknown]
  - Melaena [Unknown]
  - General physical health deterioration [Not Recovered/Not Resolved]
